FAERS Safety Report 18321074 (Version 3)
Quarter: 2020Q4

REPORT INFORMATION
  Report Type: Spontaneous
  Country: JP (occurrence: JP)
  Receive Date: 20200929
  Receipt Date: 20201217
  Transmission Date: 20210113
  Serious: Yes (Death, Hospitalization, Other)
  Sender: FDA-Public Use
  Company Number: JP-AMGEN-JPNSP2020156863

PATIENT
  Age: 79 Year
  Sex: Female
  Weight: 41.5 kg

DRUGS (3)
  1. PARSABIV [Suspect]
     Active Substance: ETELCALCETIDE HYDROCHLORIDE
     Indication: HYPERPARATHYROIDISM SECONDARY
     Dosage: 2.5 MILLIGRAM, 3 TIMES/WK
     Route: 010
     Dates: start: 20190923
  2. OXAROL [Suspect]
     Active Substance: MAXACALCITOL
     Indication: PRODUCT USED FOR UNKNOWN INDICATION
     Dosage: 5 MICROGRAM, 3 TIMES/WK
     Route: 065
  3. FOSRENOL [Concomitant]
     Active Substance: LANTHANUM CARBONATE
     Dosage: 750 MILLIGRAM, QD
     Route: 065

REACTIONS (2)
  - Angina unstable [Recovered/Resolved]
  - Acute myocardial infarction [Fatal]

NARRATIVE: CASE EVENT DATE: 20200722
